FAERS Safety Report 5486272-3 (Version None)
Quarter: 2007Q4

REPORT INFORMATION
  Report Type: 
  Country: None (occurrence: None)
  Receive Date: 20071016
  Receipt Date: 20071010
  Transmission Date: 20080405
  Serious: Yes (Hospitalization)
  Sender: FDA-Public Use
  Company Number: PHNR2007AU01358

PATIENT
  Sex: Male

DRUGS (1)
  1. VOLTAREN [Suspect]

REACTIONS (3)
  - BLOOD PRESSURE DECREASED [None]
  - DYSSTASIA [None]
  - HYPERSENSITIVITY [None]
